FAERS Safety Report 9168974 (Version 1)
Quarter: 2013Q1

REPORT INFORMATION
  Report Type: Spontaneous
  Country: US (occurrence: None)
  Receive Date: 20130314
  Receipt Date: 20130314
  Transmission Date: 20140127
  Serious: Yes (Hospitalization)
  Sender: FDA-Public Use
  Company Number: None

PATIENT
  Age: 57 Year
  Sex: Male
  Weight: 69.1 kg

DRUGS (2)
  1. AMOXICILLIN [Suspect]
     Dosage: 500 MG TID PO
     Route: 048
     Dates: start: 20120121
  2. IBUPROFEN [Suspect]
     Dosage: 800 MG  UNKNOWN  PO
     Route: 048

REACTIONS (2)
  - Drug-induced liver injury [None]
  - Hepatic enzyme increased [None]
